FAERS Safety Report 6790053-8 (Version None)
Quarter: 2010Q2

REPORT INFORMATION
  Report Type: 
  Country: None (occurrence: None)
  Receive Date: 20100624
  Receipt Date: 20100615
  Transmission Date: 20101027
  Serious: Yes (Other)
  Sender: FDA-Public Use
  Company Number: IN-PFIZER INC-2009287993

PATIENT
  Sex: Male

DRUGS (1)
  1. SUTENT [Suspect]
     Indication: METASTATIC RENAL CELL CARCINOMA
     Dosage: 50 MG, 1X/DAY, FOR 4 WEEKS ON 2 WEEKS OFF
     Route: 048

REACTIONS (8)
  - ABDOMINAL PAIN [None]
  - ARTHRITIS [None]
  - DIARRHOEA [None]
  - HYPOPHAGIA [None]
  - PRURITUS [None]
  - SKIN EXFOLIATION [None]
  - SWELLING [None]
  - VIRAL INFECTION [None]
